FAERS Safety Report 5874434-2 (Version None)
Quarter: 2008Q3

REPORT INFORMATION
  Report Type: 
  Country: None (occurrence: None)
  Receive Date: 20080908
  Receipt Date: 20080827
  Transmission Date: 20090109
  Serious: Yes (Hospitalization, Other)
  Sender: FDA-Public Use
  Company Number: JP-PFIZER INC-2008072219

PATIENT
  Age: 74 Year
  Sex: Female

DRUGS (1)
  1. AMPIROXICAM [Suspect]
     Indication: ARTHRALGIA
     Dosage: DAILY DOSE:27MG

REACTIONS (2)
  - INTESTINAL ULCER [None]
  - SMALL INTESTINAL STENOSIS [None]
